FAERS Safety Report 23382184 (Version 1)
Quarter: 2024Q1

REPORT INFORMATION
  Report Type: Spontaneous
  Country: US (occurrence: US)
  Receive Date: 20240109
  Receipt Date: 20240109
  Transmission Date: 20240409
  Serious: No
  Sender: FDA-Public Use
  Company Number: US-BEH-2024166976

PATIENT
  Sex: Male

DRUGS (5)
  1. PRIVIGEN [Suspect]
     Active Substance: HUMAN IMMUNOGLOBULIN G
     Indication: Polymyositis
     Dosage: 70 GRAM, ON DAY ONE EVERY 4 WEEK CYCLE
     Route: 042
     Dates: start: 202209
  2. PRIVIGEN [Suspect]
     Active Substance: HUMAN IMMUNOGLOBULIN G
     Indication: Polyarthritis
     Dosage: 70 GRAM, ON DAY 2 EVERY 4 WEEK CYCLE
     Route: 042
     Dates: start: 202209
  3. PRIVIGEN [Suspect]
     Active Substance: HUMAN IMMUNOGLOBULIN G
     Dosage: 60 GRAM, ON DAY 3 EVERY 4 WEEK CYCLE
     Route: 042
     Dates: start: 202209
  4. PREDNISONE [Concomitant]
     Active Substance: PREDNISONE
  5. XELJANZ [Concomitant]
     Active Substance: TOFACITINIB CITRATE

REACTIONS (3)
  - Influenza [Recovered/Resolved]
  - No adverse event [Unknown]
  - Off label use [Unknown]
